FAERS Safety Report 9252818 (Version 1)
Quarter: 2013Q2

REPORT INFORMATION
  Report Type: Spontaneous
  Country: FR (occurrence: FR)
  Receive Date: 20130424
  Receipt Date: 20130424
  Transmission Date: 20140414
  Serious: Yes (Hospitalization)
  Sender: FDA-Public Use
  Company Number: FR-BAYER-2013-051632

PATIENT
  Age: 20 Year
  Sex: Female

DRUGS (2)
  1. JASMINE [Suspect]
     Dosage: UNK
     Route: 048
  2. MINIDRIL [Suspect]
     Route: 048

REACTIONS (2)
  - Arterial thrombosis [Recovering/Resolving]
  - Renal infarct [Recovering/Resolving]
